FAERS Safety Report 9182747 (Version 1)
Quarter: 2012Q4

REPORT INFORMATION
  Report Type: 
  Country: US (occurrence: US)
  Receive Date: 20121031
  Receipt Date: 20121031
  Transmission Date: 20130627
  Serious: Yes (Hospitalization, Other)
  Sender: FDA-Public Use
  Company Number: US-RB-046005-12

PATIENT
  Age: 58 Year
  Sex: Female

DRUGS (11)
  1. SUBOXONE [Suspect]
     Indication: PRODUCT USED FOR UNKNOWN INDICATION
     Route: 060
  2. ACETAMINOPHEN [Suspect]
     Indication: PRODUCT USED FOR UNKNOWN INDICATION
     Dosage: As required, not exceeding 5 tablets a day (1500 mg)
     Route: 065
  3. ASPIRIN [Suspect]
     Indication: PRODUCT USED FOR UNKNOWN INDICATION
     Dosage: Dosing details unknown
     Route: 065
  4. VALIUM [Suspect]
     Indication: PRODUCT USED FOR UNKNOWN INDICATION
     Dosage: Dosing details unknown
     Route: 065
  5. TRAZODONE [Suspect]
     Indication: PRODUCT USED FOR UNKNOWN INDICATION
     Dosage: Dosing details unknown
     Route: 065
  6. ATORVASTATIN [Suspect]
     Indication: PRODUCT USED FOR UNKNOWN INDICATION
     Route: 065
  7. ADVAIR [Suspect]
     Indication: ASTHMA
     Dosage: Dosing details unknown
     Route: 065
  8. VENTOLIN INHALER [Suspect]
     Indication: ASTHMA
     Dosage: Ventolin inhaler; dosing details unknown
     Route: 055
  9. DULOXETINE [Suspect]
     Indication: DEPRESSION
     Route: 065
  10. DULOXETINE [Suspect]
     Indication: ANXIETY
     Route: 065
  11. DULOXETINE [Suspect]
     Indication: PAIN
     Route: 065

REACTIONS (9)
  - Acute hepatic failure [Recovered/Resolved]
  - Hepatic encephalopathy [Recovered/Resolved]
  - Renal failure acute [Recovered/Resolved]
  - Hyperbilirubinaemia [Recovered/Resolved]
  - Nausea [Unknown]
  - Vomiting [Unknown]
  - Hypophagia [Unknown]
  - Abdominal pain upper [Unknown]
  - Confusional state [Unknown]
